FAERS Safety Report 23054960 (Version 2)
Quarter: 2023Q4

REPORT INFORMATION
  Report Type: Spontaneous
  Country: SG (occurrence: SG)
  Receive Date: 20231011
  Receipt Date: 20231017
  Transmission Date: 20240110
  Serious: Yes (Other)
  Sender: FDA-Public Use
  Company Number: SG-GILEAD-2023-0646872

PATIENT
  Age: 34 Year
  Sex: Female

DRUGS (2)
  1. TRODELVY [Suspect]
     Active Substance: SACITUZUMAB GOVITECAN-HZIY
     Indication: Triple negative breast cancer
     Dosage: UNK CYCLE 1
     Route: 065
  2. TRODELVY [Suspect]
     Active Substance: SACITUZUMAB GOVITECAN-HZIY
     Dosage: 7.5 MG CYCLE 2
     Route: 065

REACTIONS (4)
  - Myelosuppression [Unknown]
  - Neutropenia [Unknown]
  - Thrombocytopenia [Unknown]
  - Alopecia [Unknown]
